FAERS Safety Report 7170001-1 (Version None)
Quarter: 2010Q4

REPORT INFORMATION
  Report Type: 
  Country: None (occurrence: None)
  Receive Date: 20101206
  Receipt Date: 20101130
  Transmission Date: 20110411
  Serious: Yes (Life-Threatening)
  Sender: FDA-Public Use
  Company Number: 10-526

PATIENT
  Age: 89 Year
  Sex: Female

DRUGS (8)
  1. APRANAX (NAPROXEN SODIUM), 550 MG, BAYER [Suspect]
     Dosage: 550 MG, DAILY, ORAL
     Route: 048
     Dates: start: 20101012, end: 20101014
  2. FOSINIPRIL (FOZITEC) [Concomitant]
  3. FUROSEMIDE (LASILIX) [Concomitant]
  4. CALCIUM CARBONATE/COLECALCIFEROL (CALPEROS D3) [Concomitant]
  5. ASCOBIC ACID/HESPERIDIN/RUSUS ACEULEATUS (CYCLO 3 FORT) [Concomitant]
  6. POTASSIUM CHLORIDE [Concomitant]
  7. FENOFIBRATE [Concomitant]
  8. RABEPRAZOLE (PARIET) [Concomitant]

REACTIONS (5)
  - ANAEMIA [None]
  - GASTROINTESTINAL HAEMORRHAGE [None]
  - HAEMODIALYSIS [None]
  - OESOPHAGEAL ULCER [None]
  - RENAL FAILURE [None]
